FAERS Safety Report 22340643 (Version 2)
Quarter: 2024Q1

REPORT INFORMATION
  Report Type: Report from Study
  Country: US (occurrence: US)
  Receive Date: 20230518
  Receipt Date: 20240308
  Transmission Date: 20240409
  Serious: Yes (Other)
  Sender: FDA-Public Use
  Company Number: US-JAZZ-2023-US-001363

PATIENT
  Age: 34 Year
  Sex: Male

DRUGS (4)
  1. XYREM [Suspect]
     Active Substance: SODIUM OXYBATE
  2. XYREM [Suspect]
     Active Substance: SODIUM OXYBATE
     Dosage: 9 GRAM TOTAL DOSE
     Dates: start: 202201
  3. XYWAV [Suspect]
     Active Substance: CALCIUM OXYBATE\MAGNESIUM OXYBATE\POTASSIUM OXYBATE\SODIUM OXYBATE
  4. ADDERALL [Concomitant]
     Active Substance: AMPHETAMINE ASPARTATE\AMPHETAMINE SULFATE\DEXTROAMPHETAMINE SACCHARATE\DEXTROAMPHETAMINE SULFATE
     Indication: Product used for unknown indication
     Dosage: UNK
     Dates: start: 20220425

REACTIONS (9)
  - Suicidal ideation [Unknown]
  - Abdominal discomfort [Unknown]
  - Depressed mood [Unknown]
  - Mental disorder [Unknown]
  - Nasopharyngitis [Unknown]
  - Nausea [Unknown]
  - Depression [Unknown]
  - Emotional disorder [Recovered/Resolved]
  - Product administration interrupted [Unknown]

NARRATIVE: CASE EVENT DATE: 20230101
